FAERS Safety Report 10191778 (Version 1)
Quarter: 2014Q2

REPORT INFORMATION
  Report Type: Spontaneous
  Country: US (occurrence: None)
  Receive Date: 20140522
  Receipt Date: 20140522
  Transmission Date: 20141212
  Serious: No
  Sender: FDA-Public Use
  Company Number: None

PATIENT
  Sex: Female

DRUGS (1)
  1. REMICADE [Suspect]
     Indication: CROHN^S DISEASE
     Dosage: REMICADE 100MG?3 VAIL?IV
     Route: 042
     Dates: start: 20130204, end: 20140203

REACTIONS (3)
  - Rash [None]
  - Pyrexia [None]
  - Erythema [None]
